FAERS Safety Report 18694014 (Version 8)
Quarter: 2022Q2

REPORT INFORMATION
  Report Type: Report from Study
  Country: CA (occurrence: CA)
  Receive Date: 20210104
  Receipt Date: 20220623
  Transmission Date: 20220720
  Serious: Yes (Hospitalization, Other)
  Sender: FDA-Public Use
  Company Number: CA-GLAXOSMITHKLINE-CA2020GSK110298

PATIENT

DRUGS (31)
  1. BUPROPION HYDROCHLORIDE [Suspect]
     Active Substance: BUPROPION HYDROCHLORIDE
     Indication: Depression
     Dosage: 300 MG, 1D
     Route: 048
     Dates: end: 20200530
  2. CONTRAVE [Suspect]
     Active Substance: BUPROPION HYDROCHLORIDE\NALTREXONE HYDROCHLORIDE
     Indication: Weight decreased
     Dosage: 1 DF, 1D, 90 MG/8 MG
     Route: 048
     Dates: start: 20200530, end: 202006
  3. CONTRAVE [Suspect]
     Active Substance: BUPROPION HYDROCHLORIDE\NALTREXONE HYDROCHLORIDE
     Dosage: 2 DF, 1D , 90 MG/8 MG
     Route: 048
     Dates: start: 20200606, end: 20200612
  4. CONTRAVE [Suspect]
     Active Substance: BUPROPION HYDROCHLORIDE\NALTREXONE HYDROCHLORIDE
     Dosage: 2 DF, 1D, 90 MG/8 MG
     Route: 048
     Dates: start: 20200613
  5. CONTRAVE [Suspect]
     Active Substance: BUPROPION HYDROCHLORIDE\NALTREXONE HYDROCHLORIDE
     Dosage: 2 DF, 1D, 90 MG/8 MG
     Route: 048
     Dates: start: 20200620, end: 2020
  6. CONTRAVE [Suspect]
     Active Substance: BUPROPION HYDROCHLORIDE\NALTREXONE HYDROCHLORIDE
     Dosage: 2 DF, BID,90 MG/8 MG
     Route: 048
     Dates: start: 20200620, end: 2020
  7. CONTRAVE [Suspect]
     Active Substance: BUPROPION HYDROCHLORIDE\NALTREXONE HYDROCHLORIDE
     Dosage: 1 DF, BID (90 MG/8 MG; 1 TABLET IN THE MORNING AND 1 TABLET IN THE EVENING)
     Route: 048
     Dates: start: 20201009, end: 202010
  8. CONTRAVE [Suspect]
     Active Substance: BUPROPION HYDROCHLORIDE\NALTREXONE HYDROCHLORIDE
     Dosage: 1 DF, QD
     Route: 048
     Dates: start: 20201113, end: 20201119
  9. CONTRAVE [Suspect]
     Active Substance: BUPROPION HYDROCHLORIDE\NALTREXONE HYDROCHLORIDE
     Dosage: 1 DF, BID (90 MG/8 MG; 1 TABLET IN THE MORNING AND 1 TABLET IN THE EVENING)
     Route: 048
     Dates: start: 20201120, end: 202011
  10. CONTRAVE [Suspect]
     Active Substance: BUPROPION HYDROCHLORIDE\NALTREXONE HYDROCHLORIDE
     Dosage: 1 DF, BID (90 MG/8 MG; 1 TABLET IN THE MORNING AND 1 TABLET IN THE EVENING)
     Route: 048
     Dates: start: 20201127, end: 2020
  11. CONTRAVE [Suspect]
     Active Substance: BUPROPION HYDROCHLORIDE\NALTREXONE HYDROCHLORIDE
     Dosage: 1 DF, BID (90 MG/8 MG; 2 TABLET IN THE MORNING AND 2 TABLET IN THE EVENING (2 DOSAGE FORMS,1 IN 12 H
     Route: 048
     Dates: start: 202012
  12. CONTRAVE [Suspect]
     Active Substance: BUPROPION HYDROCHLORIDE\NALTREXONE HYDROCHLORIDE
     Dosage: 1 DF, BID (90 MG/8 MG (1 DOSAGE FORMS,1 IN 12 HR)
     Route: 048
     Dates: start: 20210207
  13. METFORMIN [Suspect]
     Active Substance: METFORMIN HYDROCHLORIDE
     Indication: Weight decreased
     Dosage: 1000 MG, BID
     Route: 048
     Dates: start: 202201, end: 2022
  14. METFORMIN [Suspect]
     Active Substance: METFORMIN HYDROCHLORIDE
     Indication: Product use in unapproved indication
  15. OZEMPIC [Suspect]
     Active Substance: SEMAGLUTIDE
     Indication: Weight decreased
     Dosage: 0.5 MG, QD
     Route: 058
     Dates: start: 2022
  16. INDAPAMIDE [Concomitant]
     Active Substance: INDAPAMIDE
     Indication: Hypertension
     Dosage: 2.5 MG
     Route: 048
     Dates: start: 20200607
  17. INDAPAMIDE [Concomitant]
     Active Substance: INDAPAMIDE
     Dosage: 1.25 MG
     Route: 048
     Dates: start: 20200608, end: 20200622
  18. OPTIFAST [Concomitant]
     Indication: Product used for unknown indication
     Dosage: UNK
  19. TYLENOL [Concomitant]
     Active Substance: ACETAMINOPHEN
     Indication: Product used for unknown indication
     Dosage: UNK
     Route: 065
  20. ROBAXACET [Concomitant]
     Active Substance: ACETAMINOPHEN\METHOCARBAMOL
     Indication: Muscle relaxant therapy
     Dosage: UNK
     Route: 065
  21. METHOCARBAMOL [Concomitant]
     Active Substance: METHOCARBAMOL
     Indication: Muscle relaxant therapy
     Dosage: 400 MG
     Route: 065
  22. ACETAMINOPHEN [Concomitant]
     Active Substance: ACETAMINOPHEN
     Indication: Muscle relaxant therapy
     Dosage: 500 MG
     Route: 065
  23. ADALAT [Concomitant]
     Active Substance: NIFEDIPINE
     Indication: Hypertension
     Dosage: 30 MG
     Route: 048
     Dates: end: 202012
  24. ADALAT [Concomitant]
     Active Substance: NIFEDIPINE
     Dosage: 60 MG
     Route: 048
     Dates: start: 202012, end: 20210116
  25. ADALAT [Concomitant]
     Active Substance: NIFEDIPINE
     Dosage: 90 MG
     Route: 048
     Dates: start: 20210117
  26. PANTOPRAZOLE [Concomitant]
     Active Substance: PANTOPRAZOLE
     Indication: Gastrooesophageal reflux disease
     Dosage: 40 MG, QD
     Route: 048
  27. SERTRALINE [Concomitant]
     Active Substance: SERTRALINE HYDROCHLORIDE
     Indication: Depression
     Dosage: 150 MG, QD
     Route: 048
  28. ARIPIPRAZOLE [Concomitant]
     Active Substance: ARIPIPRAZOLE
     Indication: Depression
     Dosage: 3 MG, QD
     Route: 048
  29. XARELTO [Concomitant]
     Active Substance: RIVAROXABAN
     Indication: Anticoagulant therapy
     Dosage: 10 MG, QD
     Route: 048
  30. TAMSULOSIN [Concomitant]
     Active Substance: TAMSULOSIN
     Indication: Renal impairment
     Dosage: 5 MG, QD
     Route: 048
  31. ROSUVASTATIN [Concomitant]
     Active Substance: ROSUVASTATIN
     Indication: Blood cholesterol
     Dosage: 5 MG, QD
     Route: 048

REACTIONS (39)
  - Knee arthroplasty [Recovering/Resolving]
  - Hip arthroplasty [Recovering/Resolving]
  - Retinal detachment [Recovered/Resolved]
  - Blood pressure decreased [Recovered/Resolved]
  - Dizziness [Recovered/Resolved]
  - Blood pressure increased [Recovered/Resolved]
  - Anxiety [Not Recovered/Not Resolved]
  - Appetite disorder [Not Recovered/Not Resolved]
  - Myalgia [Not Recovered/Not Resolved]
  - Arthralgia [Not Recovered/Not Resolved]
  - Fatigue [Not Recovered/Not Resolved]
  - Sleep disorder [Recovering/Resolving]
  - Feeling abnormal [Unknown]
  - Weight increased [Unknown]
  - Joint stiffness [Unknown]
  - Abnormal dreams [Recovered/Resolved]
  - Pain in extremity [Not Recovered/Not Resolved]
  - Mobility decreased [Not Recovered/Not Resolved]
  - Contraindicated product administered [Unknown]
  - Product prescribing error [Unknown]
  - Drug titration error [Unknown]
  - Headache [Not Recovered/Not Resolved]
  - Hepatic mass [Unknown]
  - Arterial disorder [Unknown]
  - Nausea [Recovered/Resolved]
  - Dyspnoea [Unknown]
  - Chest pain [Unknown]
  - Abdominal distension [Not Recovered/Not Resolved]
  - Muscle spasms [Unknown]
  - Product dose omission issue [Unknown]
  - Product use in unapproved indication [Unknown]
  - Migraine [Unknown]
  - Diarrhoea [Recovered/Resolved]
  - Diplopia [Recovered/Resolved]
  - Post procedural complication [Recovered/Resolved]
  - Vomiting [Recovered/Resolved]
  - Dyspepsia [Recovering/Resolving]
  - Sciatica [Unknown]
  - Cataract [Unknown]

NARRATIVE: CASE EVENT DATE: 20200101
